FAERS Safety Report 10742773 (Version 1)
Quarter: 2015Q1

REPORT INFORMATION
  Report Type: Spontaneous
  Country: MX (occurrence: MX)
  Receive Date: 20150127
  Receipt Date: 20150127
  Transmission Date: 20150721
  Serious: Yes (Other)
  Sender: FDA-Public Use
  Company Number: PHHY2015MX008921

PATIENT
  Age: 68 Year
  Sex: Female

DRUGS (2)
  1. FLOTAC [Suspect]
     Active Substance: DICLOFENAC SODIUM
     Indication: PERIPHERAL SWELLING
     Route: 065
  2. OMEPRAZOLE. [Concomitant]
     Active Substance: OMEPRAZOLE
     Indication: PRODUCT USED FOR UNKNOWN INDICATION
     Route: 065

REACTIONS (5)
  - Cardiovascular disorder [Not Recovered/Not Resolved]
  - Colitis [Unknown]
  - Pain in extremity [Not Recovered/Not Resolved]
  - Breast cancer [Not Recovered/Not Resolved]
  - Ulcer [Unknown]

NARRATIVE: CASE EVENT DATE: 201404
